FAERS Safety Report 7502913-0 (Version None)
Quarter: 2011Q2

REPORT INFORMATION
  Report Type: 
  Country: None (occurrence: None)
  Receive Date: 20110525
  Receipt Date: 20100907
  Transmission Date: 20111010
  Serious: No
  Sender: FDA-Public Use
  Company Number: US-NOVEN-ALL1-2010-04734

PATIENT
  Age: 12 Year
  Sex: Male

DRUGS (1)
  1. DAYTRANA [Suspect]
     Dosage: 40 MG, 1X/DAY:QD, (1) 30 MG AND (1) 10 MG PATCH
     Route: 062

REACTIONS (2)
  - APPLICATION SITE IRRITATION [None]
  - OVERDOSE [None]
